FAERS Safety Report 6183109-4 (Version None)
Quarter: 2009Q2

REPORT INFORMATION
  Report Type: 
  Country: None (occurrence: None)
  Receive Date: 20090507
  Receipt Date: 20090501
  Transmission Date: 20091009
  Serious: Yes (Hospitalization)
  Sender: FDA-Public Use
  Company Number: CN-NOVOPROD-286036

PATIENT
  Age: 77 Year
  Sex: Female
  Weight: 41 kg

DRUGS (1)
  1. NOVOLOG MIX 70/30 [Suspect]
     Indication: DIABETES MELLITUS

REACTIONS (9)
  - CONVULSIONS LOCAL [None]
  - DIZZINESS [None]
  - DYSPNOEA [None]
  - FATIGUE [None]
  - HYPERTENSION [None]
  - HYPOAESTHESIA [None]
  - POOR QUALITY DRUG ADMINISTERED [None]
  - PRODUCT MEASURED POTENCY ISSUE [None]
  - VOMITING [None]
